FAERS Safety Report 22392084 (Version 1)
Quarter: 2023Q2

REPORT INFORMATION
  Report Type: Spontaneous
  Country: US (occurrence: None)
  Receive Date: 20230601
  Receipt Date: 20230601
  Transmission Date: 20230721
  Serious: No
  Sender: FDA-Public Use
  Company Number: US-ROCHE-3359820

PATIENT
  Sex: Female
  Weight: 49.94 kg

DRUGS (1)
  1. OCREVUS [Suspect]
     Active Substance: OCRELIZUMAB
     Indication: Relapsing-remitting multiple sclerosis
     Dosage: ONGOING YES
     Route: 042
     Dates: start: 2021, end: 20221202

REACTIONS (5)
  - Oral herpes [Recovered/Resolved]
  - Weight increased [Unknown]
  - Body height decreased [Unknown]
  - Brain fog [Unknown]
  - Stress [Unknown]

NARRATIVE: CASE EVENT DATE: 20221201
